FAERS Safety Report 19382513 (Version 9)
Quarter: 2021Q3

REPORT INFORMATION
  Report Type: Report from Study
  Country: JP (occurrence: JP)
  Receive Date: 20210607
  Receipt Date: 20210916
  Transmission Date: 20211014
  Serious: Yes (Death, Life-Threatening)
  Sender: FDA-Public Use
  Company Number: JP-EISAI MEDICAL RESEARCH-EC-2021-094020

PATIENT
  Age: 64 Year
  Sex: Female
  Weight: 56.6 kg

DRUGS (20)
  1. PAREPLUS [Concomitant]
     Active Substance: AMINO ACIDS\DEXTROSE\ELECTROLYTES NOS\VITAMINS
     Dates: start: 20210417, end: 20210417
  2. REBAMIPIDE [Concomitant]
     Active Substance: REBAMIPIDE
     Dates: start: 20200520, end: 20210420
  3. THYRADIN [Concomitant]
     Active Substance: LEVOTHYROXINE
     Dates: start: 20201008, end: 20210420
  4. GENTAMICIN SULFATE. [Concomitant]
     Active Substance: GENTAMICIN SULFATE
     Dates: start: 20210310
  5. ATORVASTATIN [Concomitant]
     Active Substance: ATORVASTATIN
     Dates: start: 201101, end: 20210420
  6. ACETYLOL [Concomitant]
     Dates: start: 20191120
  7. NIFEDIPINE. [Concomitant]
     Active Substance: NIFEDIPINE
     Dates: start: 20200113, end: 20210420
  8. PEMBROLIZUMAB. [Suspect]
     Active Substance: PEMBROLIZUMAB
     Route: 041
     Dates: start: 20201028, end: 20201028
  9. DELSPART [Concomitant]
     Active Substance: CLOBETASOL PROPIONATE
     Dates: start: 20200916
  10. FEXOFENADINE HYDROCHLORIDE. [Concomitant]
     Active Substance: FEXOFENADINE HYDROCHLORIDE
     Dates: start: 20191226, end: 20210420
  11. SOLDEM 3A [Concomitant]
     Active Substance: CARBOHYDRATES\POTASSIUM CHLORIDE\SODIUM CHLORIDE\SODIUM LACTATE
     Dates: start: 20210417, end: 20210516
  12. PARAFFIN [Concomitant]
     Active Substance: PARAFFIN
     Dates: start: 20191118
  13. LENVATINIB [Suspect]
     Active Substance: LENVATINIB
     Indication: ENDOMETRIAL CANCER
     Dosage: FLUCTUATED DOSAGE
     Route: 048
     Dates: start: 20191119, end: 20210413
  14. LENVATINIB [Suspect]
     Active Substance: LENVATINIB
     Route: 048
     Dates: start: 20210414, end: 20210414
  15. PEMBROLIZUMAB. [Suspect]
     Active Substance: PEMBROLIZUMAB
     Indication: ENDOMETRIAL CANCER
     Route: 041
     Dates: start: 20191119, end: 20201007
  16. LOXOPROFEN SODIUM [Concomitant]
     Active Substance: LOXOPROFEN SODIUM
     Dates: start: 20210310, end: 20210420
  17. LASIX [Concomitant]
     Active Substance: FUROSEMIDE
     Dates: start: 20210417, end: 20210417
  18. ZOLPIDEM [Concomitant]
     Active Substance: ZOLPIDEM TARTRATE
     Dates: start: 20191207, end: 20210419
  19. SOLACET F [Concomitant]
     Active Substance: CALCIUM CHLORIDE\POTASSIUM CHLORIDE\SODIUM ACETATE\SODIUM CHLORIDE
     Dates: start: 20210416, end: 20210416
  20. PROCAINE HYDROCHLORIDE [Concomitant]
     Active Substance: PROCAINE HYDROCHLORIDE
     Dates: start: 20210416, end: 20210416

REACTIONS (1)
  - Acute respiratory failure [Recovered/Resolved]

NARRATIVE: CASE EVENT DATE: 20210418
